FAERS Safety Report 4491548-2 (Version None)
Quarter: 2004Q4

REPORT INFORMATION
  Report Type: 
  Country: None (occurrence: None)
  Receive Date: 20041029
  Receipt Date: 20041012
  Transmission Date: 20050328
  Serious: Yes (Other)
  Sender: FDA-Public Use
  Company Number: 2004-00623

PATIENT
  Age: 79 Year
  Sex: Male
  Weight: 77.6 kg

DRUGS (2)
  1. VELCADE [Suspect]
     Indication: MULTIPLE MYELOMA
     Dates: start: 20040401, end: 20040801
  2. NITROGLYCERIN [Concomitant]

REACTIONS (1)
  - ARRHYTHMIA [None]
